FAERS Safety Report 5154490-X (Version None)
Quarter: 2006Q4

REPORT INFORMATION
  Report Type: 
  Country: None (occurrence: None)
  Receive Date: 20061114
  Receipt Date: 20061031
  Transmission Date: 20070319
  Serious: Yes (Other)
  Sender: FDA-Public Use
  Company Number: GBWYE209906DEC05

PATIENT
  Age: 33 Year
  Sex: Female

DRUGS (1)
  1. EFFEXOR [Suspect]
     Indication: BIPOLAR DISORDER
     Dosage: 150MG
     Dates: start: 20050901

REACTIONS (4)
  - ABORTION SPONTANEOUS [None]
  - DRUG EXPOSURE DURING PREGNANCY [None]
  - INTRA-UTERINE DEATH [None]
  - TWIN PREGNANCY [None]
